FAERS Safety Report 5131270-2 (Version None)
Quarter: 2006Q4

REPORT INFORMATION
  Report Type: 
  Country: None (occurrence: None)
  Receive Date: 20061016
  Receipt Date: 20060626
  Transmission Date: 20070319
  Serious: Yes (Hospitalization, Other)
  Sender: FDA-Public Use
  Company Number: 2006021127

PATIENT
  Age: 87 Year
  Sex: Female
  Weight: 74.8435 kg

DRUGS (7)
  1. LIPITOR [Suspect]
     Indication: BLOOD CHOLESTEROL INCREASED
     Dosage: 10 MG (10 MG, 1 IN 1 D), ORAL
     Route: 048
     Dates: end: 20050307
  2. PROCARDIA [Concomitant]
  3. HYZAAR [Concomitant]
  4. CLONIDINE [Concomitant]
  5. PRILOSEC [Concomitant]
  6. ASPIRIN [Concomitant]
  7. TRAMADOL HCL [Concomitant]

REACTIONS (5)
  - CEREBROVASCULAR ACCIDENT [None]
  - INSOMNIA [None]
  - MYALGIA [None]
  - OFF LABEL USE [None]
  - PAIN IN EXTREMITY [None]
